FAERS Safety Report 20126550 (Version 1)
Quarter: 2021Q4

REPORT INFORMATION
  Report Type: Spontaneous
  Country: US (occurrence: None)
  Receive Date: 20211129
  Receipt Date: 20211129
  Transmission Date: 20220303
  Serious: Yes (Death)
  Sender: FDA-Public Use
  Company Number: None

PATIENT
  Age: 54 Year
  Sex: Female

DRUGS (3)
  1. PHENYTOIN SODIUM [Suspect]
     Active Substance: PHENYTOIN SODIUM
     Indication: Hyperphenylalaninaemia
     Dosage: FREQUENCY : DAILY;?
     Route: 048
     Dates: start: 20201203, end: 20211020
  2. NUEDEXTA [Concomitant]
     Active Substance: DEXTROMETHORPHAN HYDROBROMIDE\QUINIDINE SULFATE
  3. TIGLUTIK [Concomitant]
     Active Substance: RILUZOLE

REACTIONS (1)
  - Death [None]

NARRATIVE: CASE EVENT DATE: 20211020
